FAERS Safety Report 12215744 (Version 1)
Quarter: 2016Q1

REPORT INFORMATION
  Report Type: Spontaneous
  Country: US (occurrence: US)
  Receive Date: 20160328
  Receipt Date: 20160328
  Transmission Date: 20160526
  Serious: Yes (Other)
  Sender: FDA-Public Use
  Company Number: US-APOTEX-2016AP007236

PATIENT
  Sex: Female

DRUGS (11)
  1. ZETIA [Suspect]
     Active Substance: EZETIMIBE
     Indication: PRODUCT USED FOR UNKNOWN INDICATION
     Dosage: 1 DF, DAILY
     Route: 048
     Dates: start: 20120228
  2. CALCIUM +D3 [Suspect]
     Active Substance: CALCIUM\CHOLECALCIFEROL
     Indication: PRODUCT USED FOR UNKNOWN INDICATION
     Dosage: 1 DF, DAILY
     Route: 048
  3. FLUTICASONE PROPIONATE. [Suspect]
     Active Substance: FLUTICASONE PROPIONATE
     Indication: PRODUCT USED FOR UNKNOWN INDICATION
     Dosage: 2 SPRAYS IN EACH NOSTRIL, ONCE DAILY
     Route: 045
     Dates: start: 20120806
  4. IBANDRONATE SODIUM. [Suspect]
     Active Substance: IBANDRONATE SODIUM
     Indication: PRODUCT USED FOR UNKNOWN INDICATION
     Dosage: 1 TABLET ONCE MONTHLY WITH 8 TO 10 OUNCES OF WATER
     Route: 048
     Dates: start: 20120820
  5. MONTELUKAST SODIUM. [Suspect]
     Active Substance: MONTELUKAST SODIUM
     Indication: PRODUCT USED FOR UNKNOWN INDICATION
     Dosage: 1 DF, Q.H.S.
     Route: 048
     Dates: start: 20120602
  6. CELEBREX [Suspect]
     Active Substance: CELECOXIB
     Indication: PRODUCT USED FOR UNKNOWN INDICATION
     Dosage: 1 DF, BID
     Route: 048
     Dates: start: 20130916
  7. VENTOLIN HFA [Suspect]
     Active Substance: ALBUTEROL SULFATE
     Indication: PRODUCT USED FOR UNKNOWN INDICATION
     Dosage: 2 PUFFS EVERY 4 TO 6 HOURS AS NEEDED
     Route: 048
     Dates: start: 20151022
  8. LISINOPRIL. [Suspect]
     Active Substance: LISINOPRIL
     Indication: PRODUCT USED FOR UNKNOWN INDICATION
     Dosage: 1 DF, QD
     Route: 048
     Dates: start: 20120116
  9. COLLAGENASE SANTYL [Suspect]
     Active Substance: COLLAGENASE CLOSTRIDIUM HISTOLYTICUM
     Indication: PRODUCT USED FOR UNKNOWN INDICATION
     Dosage: UNK
     Route: 061
     Dates: start: 20150427
  10. SCHIFF MOVE FREE [Suspect]
     Active Substance: CHONDROITIN SULFATE A\GLUCOSAMINE
     Indication: PRODUCT USED FOR UNKNOWN INDICATION
     Dosage: 1 DF, DAILY
     Route: 065
  11. VITAMIN D3 [Suspect]
     Active Substance: CHOLECALCIFEROL
     Indication: PRODUCT USED FOR UNKNOWN INDICATION
     Dosage: 2 DF, DAILY
     Route: 048

REACTIONS (13)
  - Lymphopenia [Unknown]
  - Essential hypertension [Unknown]
  - Osteoporosis [Unknown]
  - Vitamin D deficiency [Unknown]
  - Influenza [Unknown]
  - Type IIa hyperlipidaemia [Unknown]
  - Arthralgia [Unknown]
  - Post polio syndrome [Unknown]
  - Asthma [Unknown]
  - Dehydration [Unknown]
  - Osteoarthritis [Unknown]
  - Anaemia [Unknown]
  - Skin ulcer [Unknown]
